FAERS Safety Report 24565264 (Version 1)
Quarter: 2024Q4

REPORT INFORMATION
  Report Type: Report from Study
  Country: DE (occurrence: DE)
  Receive Date: 20241030
  Receipt Date: 20241030
  Transmission Date: 20250115
  Serious: Yes (Hospitalization, Other)
  Sender: NORDIC PHARMA
  Company Number: DE-ABBVIE-22K-062-4514495-00

PATIENT
  Age: 62 Year
  Sex: Male

DRUGS (3)
  1. METHOTREXATE SODIUM [Suspect]
     Active Substance: METHOTREXATE SODIUM
     Indication: Product used for unknown indication
     Dosage: START DATE: BEFORE 06-JUL-2020, FORM STRENGTH: 25 MILLIGRAM
     Route: 065
     Dates: end: 202304
  2. RINVOQ [Concomitant]
     Active Substance: UPADACITINIB
     Indication: Rheumatoid arthritis
     Route: 048
     Dates: start: 202007, end: 202201
  3. RINVOQ [Concomitant]
     Active Substance: UPADACITINIB
     Indication: Rheumatoid arthritis
     Route: 048
     Dates: start: 202203, end: 202304

REACTIONS (7)
  - Foot fracture [Recovered/Resolved]
  - Bronchopleural fistula [Not Recovered/Not Resolved]
  - Postoperative wound infection [Recovered/Resolved]
  - Pneumothorax spontaneous [Recovered/Resolved]
  - Bronchial fistula [Unknown]
  - Pneumothorax [Not Recovered/Not Resolved]
  - Thoracotomy [Not Recovered/Not Resolved]

NARRATIVE: CASE EVENT DATE: 20220101
